FAERS Safety Report 19271611 (Version 2)
Quarter: 2021Q3

REPORT INFORMATION
  Report Type: Spontaneous
  Country: US (occurrence: US)
  Receive Date: 20210519
  Receipt Date: 20210720
  Transmission Date: 20211014
  Serious: Yes (Other)
  Sender: FDA-Public Use
  Company Number: US-BIOGEN-2021BI01011798

PATIENT
  Sex: Female

DRUGS (2)
  1. TYSABRI [Suspect]
     Active Substance: NATALIZUMAB
     Indication: MULTIPLE SCLEROSIS
     Route: 065
     Dates: start: 20110324, end: 20190606
  2. TYSABRI [Suspect]
     Active Substance: NATALIZUMAB
     Route: 065
     Dates: end: 20200729

REACTIONS (6)
  - Suicidal ideation [Unknown]
  - Cognitive disorder [Unknown]
  - Memory impairment [Unknown]
  - Delusion [Unknown]
  - Aggression [Unknown]
  - Psychotic disorder [Unknown]

NARRATIVE: CASE EVENT DATE: 2020
